FAERS Safety Report 19784008 (Version 4)
Quarter: 2021Q3

REPORT INFORMATION
  Report Type: Report from Study
  Country: CH (occurrence: CH)
  Receive Date: 20210903
  Receipt Date: 20210929
  Transmission Date: 20211014
  Serious: Yes (Life-Threatening, Hospitalization, Disabling)
  Sender: FDA-Public Use
  Company Number: CH-ROCHE-2898375

PATIENT
  Age: 29 Year
  Sex: Male
  Weight: 102 kg

DRUGS (6)
  1. DAFALGAN [Concomitant]
     Active Substance: ACETAMINOPHEN
     Indication: PREMEDICATION
     Dosage: SUBSEQUENT DOSES ON: 08/MAR/2018, 17/AUG/2018, 04/FEB/2019, 05/AUG/2019, 28/JAN/2020, 20/JUL/2020,
     Route: 048
     Dates: start: 20180222, end: 20180222
  2. OCRELIZUMAB. [Suspect]
     Active Substance: OCRELIZUMAB
     Dosage: MOST RECENT DOSE PRIOR TO SAE.
     Route: 042
     Dates: start: 20210608, end: 20210608
  3. OCRELIZUMAB. [Suspect]
     Active Substance: OCRELIZUMAB
     Indication: RELAPSING-REMITTING MULTIPLE SCLEROSIS
     Route: 042
     Dates: start: 20180222, end: 20180222
  4. VI?DE3 [Concomitant]
     Indication: PROPHYLAXIS
     Dosage: DROP
     Route: 048
     Dates: start: 20180112
  5. METHYLPREDNISOLONE. [Suspect]
     Active Substance: METHYLPREDNISOLONE
     Indication: PREMEDICATION
     Dosage: SUBSEQUENT DOSES ON: 08/MAR/2018, 17/AUG/2018, 04/FEB/2019, 05/AUG/2019, 28/JAN/2020, 20/JUL/2020,
     Route: 042
     Dates: start: 20180222, end: 20180222
  6. TAVEGYL [Concomitant]
     Active Substance: CLEMASTINE FUMARATE
     Indication: PREMEDICATION
     Dosage: SUBSEQUENT DOSES ON: 08/MAR/2018, 17/AUG/2018, 04/FEB/2019, 05/AUG/2019, 28/JAN/2020, 20/JUL/2020,
     Route: 042
     Dates: start: 20180222, end: 20180222

REACTIONS (1)
  - COVID-19 [Recovering/Resolving]

NARRATIVE: CASE EVENT DATE: 20210820
